FAERS Safety Report 9394045 (Version 2)
Quarter: 2013Q4

REPORT INFORMATION
  Report Type: Report from Study
  Country: FR (occurrence: FR)
  Receive Date: 20130710
  Receipt Date: 20131018
  Transmission Date: 20140711
  Serious: Yes (Death, Hospitalization)
  Sender: FDA-Public Use
  Company Number: FR-ELI_LILLY_AND_COMPANY-FR201306001722

PATIENT
  Age: 66 Year
  Sex: Male

DRUGS (5)
  1. PEMETREXED [Suspect]
     Indication: LUNG CANCER METASTATIC
     Dosage: 925 MG, EVERY 3 WEEKS
     Route: 042
     Dates: start: 20121204, end: 20130116
  2. CARBOPLATIN [Suspect]
     Indication: LUNG CANCER METASTATIC
     Dosage: UNK
  3. FOLIC ACID [Concomitant]
     Indication: PREMEDICATION
     Dosage: UNK
  4. VITAMIN B12 [Concomitant]
     Indication: PREMEDICATION
  5. DEXAMETHASONE [Concomitant]
     Indication: PREMEDICATION
     Dosage: UNK

REACTIONS (2)
  - Pancytopenia [Fatal]
  - Escherichia infection [Fatal]
